FAERS Safety Report 22832397 (Version 2)
Quarter: 2023Q4

REPORT INFORMATION
  Report Type: Report from Study
  Country: JP (occurrence: JP)
  Receive Date: 20230817
  Receipt Date: 20231130
  Transmission Date: 20240110
  Serious: Yes (Death)
  Sender: FDA-Public Use
  Company Number: JP-SERVIER-S22008598

PATIENT
  Age: 75 Year
  Sex: Male
  Weight: 50.8 kg

DRUGS (16)
  1. ONIVYDE [Suspect]
     Active Substance: IRINOTECAN HYDROCHLORIDE
     Indication: Pancreatic carcinoma
     Dosage: 56 MG/M2
     Route: 065
     Dates: start: 20220309, end: 20220309
  2. ONIVYDE [Suspect]
     Active Substance: IRINOTECAN HYDROCHLORIDE
     Dosage: 56 MG/M2
     Route: 065
     Dates: start: 20220324, end: 20220324
  3. ONIVYDE [Suspect]
     Active Substance: IRINOTECAN HYDROCHLORIDE
     Dosage: 56 MG/M2
     Route: 065
     Dates: start: 20220411, end: 20220411
  4. ONIVYDE [Suspect]
     Active Substance: IRINOTECAN HYDROCHLORIDE
     Dosage: 56 MG/M2
     Route: 065
     Dates: start: 20220516, end: 20220516
  5. ONIVYDE [Suspect]
     Active Substance: IRINOTECAN HYDROCHLORIDE
     Dosage: 56 MG/M2
     Route: 065
     Dates: start: 20220613, end: 20220613
  6. LEVOLEUCOVORIN CALCIUM [Concomitant]
     Active Substance: LEVOLEUCOVORIN CALCIUM
     Indication: Pancreatic carcinoma
     Dosage: 200 MG/M2
     Route: 065
     Dates: start: 20220309, end: 20220309
  7. LEVOLEUCOVORIN CALCIUM [Concomitant]
     Active Substance: LEVOLEUCOVORIN CALCIUM
     Dosage: 300 MG/M2
     Route: 065
     Dates: start: 20220324, end: 20220324
  8. LEVOLEUCOVORIN CALCIUM [Concomitant]
     Active Substance: LEVOLEUCOVORIN CALCIUM
     Dosage: 300 MG/M2
     Route: 065
     Dates: start: 20220411, end: 20220411
  9. LEVOLEUCOVORIN CALCIUM [Concomitant]
     Active Substance: LEVOLEUCOVORIN CALCIUM
     Dosage: 300 MG/M2
     Route: 065
     Dates: start: 20220516, end: 20220516
  10. LEVOLEUCOVORIN CALCIUM [Concomitant]
     Active Substance: LEVOLEUCOVORIN CALCIUM
     Dosage: 300 MG/M2
     Route: 065
     Dates: start: 20220613, end: 20220613
  11. FLUOROURACIL [Concomitant]
     Active Substance: FLUOROURACIL
     Indication: Pancreatic carcinoma
     Dosage: 1920 MG/M2
     Route: 065
     Dates: start: 20220309, end: 20220311
  12. FLUOROURACIL [Concomitant]
     Active Substance: FLUOROURACIL
     Dosage: 1920 MG/M2
     Route: 065
     Dates: start: 20220324, end: 20220326
  13. FLUOROURACIL [Concomitant]
     Active Substance: FLUOROURACIL
     Dosage: 1920 MG/M2
     Route: 065
     Dates: start: 20220411, end: 20220413
  14. FLUOROURACIL [Concomitant]
     Active Substance: FLUOROURACIL
     Dosage: 1920 MG/M2
     Route: 065
     Dates: start: 20220516, end: 20220518
  15. FLUOROURACIL [Concomitant]
     Active Substance: FLUOROURACIL
     Dosage: 1920 MG/M2
     Route: 065
     Dates: start: 20220613, end: 20220615
  16. PALONOSETRON [Concomitant]
     Active Substance: PALONOSETRON
     Indication: Chemotherapy side effect prophylaxis
     Dosage: UNK
     Route: 065

REACTIONS (2)
  - Malignant neoplasm progression [Fatal]
  - Off label use [Recovered/Resolved]

NARRATIVE: CASE EVENT DATE: 20220309
